FAERS Safety Report 8494084-1 (Version None)
Quarter: 2012Q2

REPORT INFORMATION
  Report Type: 
  Country: None (occurrence: None)
  Receive Date: 20120629
  Receipt Date: 20120629
  Transmission Date: 20120825
  Serious: Yes (Other)
  Sender: FDA-Public Use
  Company Number: None

PATIENT
  Age: 74 Year
  Sex: Male
  Weight: 61.6892 kg

DRUGS (1)
  1. CEPHALEXIN [Suspect]
     Indication: RESPIRATORY TRACT INFECTION
     Dosage: ONE CAPS. 3/DAY ORAL
     Route: 048
     Dates: start: 20120516

REACTIONS (2)
  - ABDOMINAL PAIN UPPER [None]
  - PRODUCT ODOUR ABNORMAL [None]
